FAERS Safety Report 9719847 (Version 3)
Quarter: 2014Q1

REPORT INFORMATION
  Report Type: Report from Study
  Country: DE (occurrence: DE)
  Receive Date: 20131128
  Receipt Date: 20140304
  Transmission Date: 20141002
  Serious: Yes (Hospitalization)
  Sender: FDA-Public Use
  Company Number: DE-JNJFOC-20131114539

PATIENT
  Age: 63 Year
  Sex: Male
  Weight: 88 kg

DRUGS (14)
  1. SIMPONI [Suspect]
     Indication: PSORIATIC ARTHROPATHY
     Route: 058
  2. SIMPONI [Suspect]
     Indication: PSORIATIC ARTHROPATHY
     Route: 058
     Dates: start: 20130302
  3. AMOXICILLIN [Suspect]
     Indication: PRODUCT USED FOR UNKNOWN INDICATION
     Route: 065
  4. NOVALGIN [Suspect]
     Indication: PRODUCT USED FOR UNKNOWN INDICATION
     Route: 065
  5. PANTOPRAZOLE [Concomitant]
     Route: 065
  6. AMLODIPINE [Concomitant]
     Route: 065
  7. DIOVAN [Concomitant]
     Route: 065
  8. BISOPROLOL [Concomitant]
     Route: 065
  9. SIMVASTATIN [Concomitant]
     Route: 065
  10. METEX [Concomitant]
     Route: 065
  11. FOLIC ACID [Concomitant]
     Route: 065
  12. CETIRIZINE [Concomitant]
     Route: 065
     Dates: start: 20131107, end: 20131127
  13. METRONIDAZOL [Concomitant]
     Dosage: FOR 10 DAYS
     Route: 065
     Dates: start: 20131107
  14. CLARITHROMYCIN [Concomitant]
     Dosage: FOR 10 DAYS
     Route: 065
     Dates: start: 20131107

REACTIONS (2)
  - Hypotension [Recovered/Resolved]
  - Hypersensitivity [Recovered/Resolved]
